FAERS Safety Report 16248525 (Version 3)
Quarter: 2019Q3

REPORT INFORMATION
  Report Type: Report from Study
  Country: BR (occurrence: BR)
  Receive Date: 20190429
  Receipt Date: 20190711
  Transmission Date: 20191004
  Serious: Yes (Other)
  Sender: FDA-Public Use
  Company Number: BR-BRISTOL-MYERS SQUIBB COMPANY-BMS-2016-106257

PATIENT
  Age: 63 Year
  Sex: Female

DRUGS (3)
  1. SELOZOK [Concomitant]
     Active Substance: METOPROLOL SUCCINATE
     Indication: PRODUCT USED FOR UNKNOWN INDICATION
     Dosage: UNK
     Route: 065
  2. ABATACEPT [Suspect]
     Active Substance: ABATACEPT
     Indication: RHEUMATOID ARTHRITIS
     Dosage: 1 DOSAGE FORM, QMO
     Route: 042
  3. SINVACOR [Concomitant]
     Active Substance: SIMVASTATIN
     Indication: PRODUCT USED FOR UNKNOWN INDICATION
     Dosage: UNK
     Route: 065

REACTIONS (10)
  - Skin laceration [Recovering/Resolving]
  - Peripheral swelling [Recovering/Resolving]
  - Nephrotic syndrome [Unknown]
  - Viral infection [Recovering/Resolving]
  - Urinary tract infection [Recovering/Resolving]
  - Protein deficiency [Recovering/Resolving]
  - Arrhythmia [Recovering/Resolving]
  - Eye swelling [Recovering/Resolving]
  - Fall [Recovering/Resolving]
  - Discomfort [Recovering/Resolving]

NARRATIVE: CASE EVENT DATE: 201611
